FAERS Safety Report 9472870 (Version 2)
Quarter: 2013Q3

REPORT INFORMATION
  Report Type: Spontaneous
  Country: US (occurrence: US)
  Receive Date: 20130823
  Receipt Date: 20130930
  Transmission Date: 20140515
  Serious: No
  Sender: FDA-Public Use
  Company Number: US-PFIZER INC-2013240042

PATIENT
  Age: 55 Year
  Sex: Male

DRUGS (7)
  1. VIAGRA [Suspect]
     Indication: ERECTILE DYSFUNCTION
     Dosage: 100 MG (1/2 TO 1 TAB DAILY) AS NEEDED
     Route: 048
  2. ALBUTEROL [Concomitant]
     Dosage: UNK
  3. NAPROXEN [Concomitant]
     Dosage: UNK
  4. SENNA [Concomitant]
     Dosage: UNK
  5. NEURONTIN [Concomitant]
     Dosage: UNK
  6. DOXEPIN [Concomitant]
     Dosage: UNK
  7. RANITIDINE [Concomitant]
     Dosage: UNK

REACTIONS (1)
  - Neuralgia [Unknown]
